FAERS Safety Report 8187528-6 (Version None)
Quarter: 2012Q1

REPORT INFORMATION
  Report Type: 
  Country: None (occurrence: None)
  Receive Date: 20120306
  Receipt Date: 20120221
  Transmission Date: 20120608
  Serious: Yes (Hospitalization)
  Sender: FDA-Public Use
  Company Number: NL-MEDIMMUNE-MEDI-0014747

PATIENT
  Sex: Male
  Weight: 9.2 kg

DRUGS (5)
  1. DOMPERIDONE [Concomitant]
  2. SYNAGIS [Suspect]
     Route: 030
     Dates: start: 20111101, end: 20111227
  3. ESOMEPRAZOLE SODIUM [Concomitant]
  4. BACTRIM [Concomitant]
  5. SYNAGIS [Suspect]
     Indication: BRONCHOPULMONARY DYSPLASIA

REACTIONS (3)
  - COUGH [None]
  - OXYGEN SATURATION DECREASED [None]
  - PYREXIA [None]
